FAERS Safety Report 24638368 (Version 2)
Quarter: 2025Q2

REPORT INFORMATION
  Report Type: Spontaneous
  Country: US (occurrence: US)
  Receive Date: 20241119
  Receipt Date: 20250605
  Transmission Date: 20250717
  Serious: Yes (Death)
  Sender: NOVARTIS
  Company Number: US-002147023-NVSC2024US222215

PATIENT
  Age: 33 Year
  Sex: Female

DRUGS (1)
  1. ILARIS [Suspect]
     Active Substance: CANAKINUMAB
     Indication: Product used for unknown indication
     Route: 065

REACTIONS (2)
  - Haemophagocytic lymphohistiocytosis [Fatal]
  - Still^s disease [Fatal]
